FAERS Safety Report 4737178-6 (Version None)
Quarter: 2005Q3

REPORT INFORMATION
  Report Type: 
  Country: None (occurrence: None)
  Receive Date: 20050808
  Receipt Date: 20050803
  Transmission Date: 20060218
  Serious: Yes (Hospitalization)
  Sender: FDA-Public Use
  Company Number: GB-MERCK-0508GBR00028

PATIENT
  Age: 80 Year
  Sex: Male

DRUGS (3)
  1. ZOCOR [Suspect]
     Route: 065
  2. ATORVASTATIN CALCIUM [Suspect]
     Route: 048
  3. ERYTHROMYCIN [Concomitant]
     Route: 065

REACTIONS (2)
  - HEPATIC FAILURE [None]
  - RENAL FAILURE [None]
